FAERS Safety Report 9741702 (Version 4)
Quarter: 2013Q4

REPORT INFORMATION
  Report Type: Report from Study
  Country: DE (occurrence: DE)
  Receive Date: 20131210
  Receipt Date: 20131213
  Transmission Date: 20140711
  Serious: Yes (Death, Hospitalization)
  Sender: FDA-Public Use
  Company Number: DE-ROCHE-1198357

PATIENT
  Age: 21 Year
  Sex: Male
  Weight: 55.3 kg

DRUGS (8)
  1. BEVACIZUMAB [Suspect]
     Indication: COLON CANCER
     Dosage: LAST DOSE PRIOR TO EMESIS: 27/FEB/2013 AT 5MG/KG, LAST DOSE PRIOR TO PROGRESSIVE PAIN ABDOMEN:13/MAR
     Route: 042
     Dates: start: 20130213, end: 20130326
  2. BEVACIZUMAB [Suspect]
     Dosage: LAST DOSE PRIOR TO SAE: 13/MAR/2013 AT 5MG/KG
     Route: 042
     Dates: start: 20130213, end: 20130326
  3. 5-FLUOROURACIL [Suspect]
     Indication: COLON CANCER
     Dosage: LAST DOSE PRIOR TO EMESIS: 27/FEB/2013 AT 3200MG/M2, LAST DOSE PRIOR TO PROGRESSIVE PAIN ABDOMEN :13
     Route: 042
     Dates: start: 20130130
  4. FOLINIC ACID [Suspect]
     Indication: COLON CANCER
     Dosage: LAST DOSE PRIOR TO EMESIS: 27/FEB/2013 AT 400MG/M2, LAST DOSE PRIOR TO PROGRESSIVE PAIN(ABDOMEN) AT
     Route: 042
     Dates: start: 20130130, end: 20130326
  5. FOLINIC ACID [Suspect]
     Dosage: LAST DOSE PRIOR TO SAE: 13/MAR/2013 AT 400MG/M2
     Route: 042
     Dates: start: 20130130, end: 20130326
  6. OXALIPLATIN [Suspect]
     Indication: COLON CANCER
     Dosage: LAST DOSE PRIOR TO EMESIS: 27/FEB/2013 AT 85MG/M2, LAST DOSE PRIOR TO PROGRESSIVE PAIN ABDOMEN:30/JA
     Route: 042
     Dates: start: 20130130, end: 20130313
  7. NOVALGIN [Concomitant]
     Indication: PAIN
     Route: 065
     Dates: start: 2013
  8. METOCLOPRAMIDE/METOCLOPRAMIDE HYDROCHLORIDE [Concomitant]
     Route: 065
     Dates: start: 2013

REACTIONS (2)
  - Nausea [Recovered/Resolved]
  - Ileus [Fatal]
